FAERS Safety Report 8084306-3 (Version None)
Quarter: 2012Q1

REPORT INFORMATION
  Report Type: 
  Country: None (occurrence: None)
  Receive Date: 20120128
  Receipt Date: 20110305
  Transmission Date: 20120608
  Serious: No
  Sender: FDA-Public Use
  Company Number: US-ABBOTT-11P-163-0709737-00

PATIENT
  Age: 44 Year
  Sex: Female

DRUGS (3)
  1. SKELAXIN [Concomitant]
     Indication: MUSCLE RELAXANT THERAPY
  2. HUMIRA [Suspect]
     Indication: PSORIASIS
     Dates: start: 20110304, end: 20110304
  3. XANAX [Concomitant]
     Indication: ANXIETY

REACTIONS (1)
  - MUSCLE TIGHTNESS [None]
